FAERS Safety Report 8927657 (Version 1)
Quarter: 2012Q4

REPORT INFORMATION
  Report Type: 
  Country: GR (occurrence: GR)
  Receive Date: 20121127
  Receipt Date: 20121127
  Transmission Date: 20130627
  Serious: Yes (Other)
  Sender: FDA-Public Use
  Company Number: PHHY2012GR105238

PATIENT
  Sex: Female

DRUGS (5)
  1. STALEVO [Suspect]
     Indication: PARKINSON^S DISEASE
     Dosage: UNK
  2. STALEVO [Suspect]
     Dosage: UNK
  3. EXELON [Suspect]
     Dosage: UNK
  4. EUCREAS [Suspect]
  5. MIRAPEXIN [Concomitant]

REACTIONS (6)
  - Diabetes mellitus [Unknown]
  - Colitis [Unknown]
  - Depression [Unknown]
  - Dizziness [Unknown]
  - Nausea [Unknown]
  - Diarrhoea [Not Recovered/Not Resolved]
